FAERS Safety Report 12695509 (Version 1)
Quarter: 2016Q3

REPORT INFORMATION
  Report Type: Spontaneous
  Country: US (occurrence: US)
  Receive Date: 20160829
  Receipt Date: 20160829
  Transmission Date: 20161109
  Serious: Yes (Hospitalization, Other)
  Sender: FDA-Public Use
  Company Number: US-PFIZER INC-2011289367

PATIENT
  Age: 64 Year
  Sex: Male

DRUGS (3)
  1. ENBREL [Suspect]
     Active Substance: ETANERCEPT
     Indication: PSORIASIS
     Dosage: UNK, 2X/WEEK
  2. METHOTREXATE SODIUM. [Suspect]
     Active Substance: METHOTREXATE SODIUM
     Dosage: 4 MG, WEEKLY
     Dates: start: 201103
  3. ENBREL [Suspect]
     Active Substance: ETANERCEPT
     Indication: PSORIATIC ARTHROPATHY
     Dosage: 50 MG, WEEKLY
     Dates: start: 2001

REACTIONS (6)
  - Hepatic failure [Unknown]
  - Transient ischaemic attack [Unknown]
  - Pneumonia bacterial [Recovered/Resolved]
  - Cardiac failure congestive [Unknown]
  - Chronic kidney disease [Unknown]
  - Memory impairment [Unknown]

NARRATIVE: CASE EVENT DATE: 201110
